FAERS Safety Report 20808039 (Version 1)
Quarter: 2022Q2

REPORT INFORMATION
  Report Type: Spontaneous
  Country: CA (occurrence: CA)
  Receive Date: 20220510
  Receipt Date: 20220510
  Transmission Date: 20220720
  Serious: Yes (Death, Other)
  Sender: FDA-Public Use
  Company Number: CA-TEVA-2022-CA-2034028

PATIENT
  Age: 64 Year
  Sex: Male

DRUGS (4)
  1. METHYLPREDNISOLONE [Suspect]
     Active Substance: METHYLPREDNISOLONE
     Indication: Interstitial lung disease
     Dosage: 80 MILLIGRAM DAILY;
     Route: 042
  2. METHYLPREDNISOLONE [Suspect]
     Active Substance: METHYLPREDNISOLONE
     Indication: Acute respiratory distress syndrome
     Route: 042
  3. INOMAX [Suspect]
     Active Substance: NITRIC OXIDE
     Indication: COVID-19
     Route: 065
  4. INOMAX [Suspect]
     Active Substance: NITRIC OXIDE
     Indication: Acute respiratory distress syndrome
     Route: 055

REACTIONS (7)
  - Acute kidney injury [Fatal]
  - Bacteraemia [Fatal]
  - COVID-19 [Fatal]
  - Pneumonia bacterial [Fatal]
  - Pulmonary tuberculosis [Fatal]
  - Product use in unapproved indication [Fatal]
  - Product use issue [Fatal]
